FAERS Safety Report 7291201-6 (Version None)
Quarter: 2011Q1

REPORT INFORMATION
  Report Type: 
  Country: None (occurrence: None)
  Receive Date: 20110214
  Receipt Date: 20110203
  Transmission Date: 20110831
  Serious: Yes (Hospitalization, Disabling)
  Sender: FDA-Public Use
  Company Number: US-MERCK-1007USA00205

PATIENT
  Sex: Female
  Weight: 111 kg

DRUGS (3)
  1. FOSAMAX [Suspect]
     Route: 048
     Dates: start: 20020101, end: 20090101
  2. FOSAMAX [Suspect]
     Indication: OSTEOPENIA
     Route: 048
     Dates: start: 19970101, end: 20020101
  3. ALENDRONATE SODIUM [Suspect]
     Indication: OSTEOPENIA
     Route: 048
     Dates: start: 20080314, end: 20090223

REACTIONS (39)
  - PYREXIA [None]
  - BACK PAIN [None]
  - EXOSTOSIS [None]
  - DRUG INTOLERANCE [None]
  - VITAMIN D DEFICIENCY [None]
  - PAIN IN EXTREMITY [None]
  - ANAEMIA OF CHRONIC DISEASE [None]
  - CATARACT [None]
  - TOOTH ABSCESS [None]
  - TEMPOROMANDIBULAR JOINT SYNDROME [None]
  - OVARIAN DISORDER [None]
  - CHEST PAIN [None]
  - OSTEOARTHRITIS [None]
  - INFECTED CYST [None]
  - LEUKOCYTOSIS [None]
  - HAEMATURIA [None]
  - DIARRHOEA [None]
  - EYE DISORDER [None]
  - HYPOAESTHESIA [None]
  - HIP FRACTURE [None]
  - CYST [None]
  - EYE INFECTION [None]
  - SINUS HEADACHE [None]
  - HYPERTENSION [None]
  - FLATULENCE [None]
  - ADVERSE DRUG REACTION [None]
  - WEIGHT DECREASED [None]
  - ANAEMIA [None]
  - WART EXCISION [None]
  - URGE INCONTINENCE [None]
  - TOOTH DISORDER [None]
  - INSULIN RESISTANCE [None]
  - HYPERSENSITIVITY [None]
  - FEMUR FRACTURE [None]
  - ANKLE FRACTURE [None]
  - DIVERTICULUM [None]
  - TREATMENT NONCOMPLIANCE [None]
  - OEDEMA PERIPHERAL [None]
  - GASTROOESOPHAGEAL REFLUX DISEASE [None]
